FAERS Safety Report 16731025 (Version 1)
Quarter: 2019Q4

REPORT INFORMATION
  Report Type: Spontaneous
  Country: US (occurrence: US)
  Receive Date: 20190822
  Receipt Date: 20190822
  Transmission Date: 20200122
  Serious: Yes (Disabling)
  Sender: FDA-Public Use
  Company Number: None

PATIENT
  Age: 12 Year
  Sex: Male
  Weight: 58.05 kg

DRUGS (1)
  1. DOXYCYCLINE HYCLATE 100 MG [Suspect]
     Active Substance: DOXYCYCLINE HYCLATE
     Indication: ACNE
     Dosage: ?          QUANTITY:1 CAPSULE(S);?
     Route: 048
     Dates: start: 20160524, end: 20160615

REACTIONS (7)
  - Product use complaint [None]
  - Growth retardation [None]
  - Acne [None]
  - Blood testosterone decreased [None]
  - Skin striae [None]
  - Emotional disorder [None]
  - Product prescribing issue [None]

NARRATIVE: CASE EVENT DATE: 20160615
